FAERS Safety Report 17523606 (Version 9)
Quarter: 2020Q2

REPORT INFORMATION
  Report Type: Report from Study
  Country: None (occurrence: ES)
  Receive Date: 20200311
  Receipt Date: 20200520
  Transmission Date: 20200713
  Serious: Yes (Other)
  Sender: FDA-Public Use
  Company Number: ES-ABBVIE-19K-144-3194169-00

PATIENT
  Age: 70 Year
  Sex: Female
  Weight: 80 kg

DRUGS (10)
  1. CLONAZEPAM. [Suspect]
     Active Substance: CLONAZEPAM
     Dosage: 0.25 MG DAILY
     Route: 048
     Dates: start: 20200330, end: 2020
  2. DUODOPA [Suspect]
     Active Substance: CARBIDOPA\LEVODOPA
     Route: 050
     Dates: start: 202003, end: 202003
  3. DUODOPA [Suspect]
     Active Substance: CARBIDOPA\LEVODOPA
     Route: 050
     Dates: start: 202003
  4. CLONAZEPAM. [Suspect]
     Active Substance: CLONAZEPAM
     Dosage: (0.5 MG) 1/2 TABLET AT 16H AND 1/2 TABLET AT 20H
     Route: 048
     Dates: start: 20200513
  5. DUODOPA [Suspect]
     Active Substance: CARBIDOPA\LEVODOPA
     Dosage: DOSE INCREASED
     Route: 050
     Dates: start: 20191213
  6. CLONAZEPAM. [Suspect]
     Active Substance: CLONAZEPAM
     Route: 048
     Dates: start: 20200310, end: 20200310
  7. XADAGO [Concomitant]
     Active Substance: SAFINAMIDE MESYLATE
     Indication: PRODUCT USED FOR UNKNOWN INDICATION
     Dosage: HALF TABLET DAILY
     Route: 048
     Dates: start: 20200310
  8. DUODOPA [Suspect]
     Active Substance: CARBIDOPA\LEVODOPA
     Indication: PARKINSON^S DISEASE
     Route: 050
     Dates: start: 20191202, end: 201912
  9. CLONAZEPAM. [Suspect]
     Active Substance: CLONAZEPAM
     Indication: MUSCLE SPASMS
     Route: 048
     Dates: end: 20200305
  10. CLONAZEPAM. [Suspect]
     Active Substance: CLONAZEPAM
     Dosage: 0.5?HALF TABLET AT 16H AND HALF TABLET AT 20H
     Route: 048
     Dates: start: 20200310, end: 20200330

REACTIONS (26)
  - Loss of consciousness [Recovered/Resolved]
  - Feeling abnormal [Unknown]
  - Overdose [Unknown]
  - Weight decreased [Not Recovered/Not Resolved]
  - Pain [Not Recovered/Not Resolved]
  - Musculoskeletal stiffness [Recovered/Resolved]
  - Stoma site pain [Recovered/Resolved]
  - Somnolence [Recovered/Resolved]
  - Unresponsive to stimuli [Unknown]
  - Discomfort [Not Recovered/Not Resolved]
  - Mental status changes [Not Recovered/Not Resolved]
  - Muscle spasms [Recovered/Resolved]
  - Decreased appetite [Unknown]
  - Pain in extremity [Not Recovered/Not Resolved]
  - Paraesthesia [Unknown]
  - Drug ineffective [Not Recovered/Not Resolved]
  - General symptom [Unknown]
  - Muscular weakness [Recovering/Resolving]
  - Musculoskeletal stiffness [Unknown]
  - Headache [Recovered/Resolved]
  - Drug ineffective [Recovered/Resolved]
  - Fatigue [Unknown]
  - Gait inability [Unknown]
  - Muscle spasms [Not Recovered/Not Resolved]
  - Somnolence [Not Recovered/Not Resolved]
  - Diarrhoea [Recovered/Resolved]

NARRATIVE: CASE EVENT DATE: 201912
